FAERS Safety Report 5150838-0 (Version None)
Quarter: 2006Q4

REPORT INFORMATION
  Report Type: 
  Country: None (occurrence: None)
  Receive Date: 20061114
  Receipt Date: 20061102
  Transmission Date: 20070319
  Serious: Yes (Hospitalization)
  Sender: FDA-Public Use
  Company Number: IE-ELI_LILLY_AND_COMPANY-IE200611000318

PATIENT
  Sex: Male

DRUGS (2)
  1. VERAPAMIL [Concomitant]
     Dosage: 120 MG, UNK
  2. CIALIS [Suspect]
     Indication: ERECTILE DYSFUNCTION

REACTIONS (2)
  - ARRHYTHMIA [None]
  - EPILEPSY [None]
